FAERS Safety Report 4685530-X (Version None)
Quarter: 2005Q2

REPORT INFORMATION
  Report Type: 
  Country: None (occurrence: None)
  Receive Date: 20050608
  Receipt Date: 20050414
  Transmission Date: 20051028
  Serious: Yes (Hospitalization, Other)
  Sender: FDA-Public Use
  Company Number: 2005UW05850

PATIENT
  Age: 65 Year
  Sex: Female

DRUGS (16)
  1. CRESTOR [Suspect]
     Route: 048
     Dates: start: 20040201, end: 20050405
  2. TRICOR [Suspect]
     Dates: start: 20050323, end: 20050401
  3. KLONOPIN [Concomitant]
  4. LORTAB [Concomitant]
  5. EFFEXOR XR [Concomitant]
  6. DURAGESIC-100 [Concomitant]
  7. SYNTHROID [Concomitant]
  8. MAXIDEX [Concomitant]
  9. MAVIK [Concomitant]
  10. IRON GLUCONATE [Concomitant]
  11. ZANTAC [Concomitant]
  12. ASTALIN [Concomitant]
  13. ZYRTEC [Concomitant]
  14. ASPIRIN [Concomitant]
  15. CALCIUM WITH VITAMIN D [Concomitant]
  16. ACTONEL [Concomitant]

REACTIONS (5)
  - BLOOD CREATINE PHOSPHOKINASE INCREASED [None]
  - BLOOD CREATININE INCREASED [None]
  - PAIN IN EXTREMITY [None]
  - RHABDOMYOLYSIS [None]
  - URINARY TRACT INFECTION [None]
